FAERS Safety Report 13685887 (Version 1)
Quarter: 2017Q2

REPORT INFORMATION
  Report Type: Spontaneous
  Country: US (occurrence: US)
  Receive Date: 20170623
  Receipt Date: 20170623
  Transmission Date: 20170830
  Serious: Yes (Other)
  Sender: FDA-Public Use
  Company Number: US-ROCHE-1149034

PATIENT
  Age: 31 Year
  Sex: Female

DRUGS (9)
  1. CELLCEPT [Suspect]
     Active Substance: MYCOPHENOLATE MOFETIL\MYCOPHENOLATE MOFETIL HYDROCHLORIDE
     Indication: PRODUCT USED FOR UNKNOWN INDICATION
     Route: 065
  2. SOLIRIS [Suspect]
     Active Substance: ECULIZUMAB
     Route: 065
     Dates: start: 201207
  3. METOPROLOL. [Concomitant]
     Active Substance: METOPROLOL
  4. SOLIRIS [Suspect]
     Active Substance: ECULIZUMAB
     Route: 065
     Dates: start: 20120829
  5. SOLIRIS [Suspect]
     Active Substance: ECULIZUMAB
     Indication: HAEMOLYTIC URAEMIC SYNDROME
     Route: 065
     Dates: start: 201106
  6. PREDNISONE. [Concomitant]
     Active Substance: PREDNISONE
  7. CYMBALTA [Concomitant]
     Active Substance: DULOXETINE HYDROCHLORIDE
  8. SOLIRIS [Suspect]
     Active Substance: ECULIZUMAB
     Route: 065
  9. TACROLIMUS. [Concomitant]
     Active Substance: TACROLIMUS

REACTIONS (3)
  - Epstein-Barr viraemia [Recovered/Resolved]
  - Adenoviral haemorrhagic cystitis [Unknown]
  - Cytomegalovirus infection [Recovered/Resolved]

NARRATIVE: CASE EVENT DATE: 20111128
